FAERS Safety Report 8794408 (Version 1)
Quarter: 2012Q4

REPORT INFORMATION
  Report Type: 
  Country: US (occurrence: US)
  Receive Date: 20120917
  Receipt Date: 20120917
  Transmission Date: 20130627
  Serious: No
  Sender: FDA-Public Use
  Company Number: US-VERTEX PHARMACEUTICAL INC.-AE-2012-010492

PATIENT
  Age: 57 Year
  Sex: Female
  Weight: 57 kg

DRUGS (6)
  1. VX-950 [Suspect]
     Indication: HEPATITIS C
     Dosage: 750 mg, tid
     Route: 048
     Dates: start: 20120322, end: 20120711
  2. RIBASPHERE [Concomitant]
     Indication: HEPATITIS C
     Dosage: UNK
     Route: 048
     Dates: start: 20120322
  3. PEGASYS [Concomitant]
     Indication: HEPATITIS C
     Dosage: 180 ?g, UNK
     Route: 058
     Dates: start: 20120322
  4. METHADONE HCL [Concomitant]
     Route: 048
  5. PROCRIT                            /00928302/ [Concomitant]
     Dosage: 40000 ut, UNK
     Route: 058
     Dates: start: 20120904
  6. NEUPOGEN [Concomitant]
     Dosage: 480 ?g, UNK
     Route: 058
     Dates: start: 20120904

REACTIONS (7)
  - Joint swelling [Unknown]
  - Oral pain [Unknown]
  - Glossitis [Unknown]
  - Stomatitis [Unknown]
  - Ephelides [Unknown]
  - Oedema peripheral [Unknown]
  - Rash papular [Unknown]
